FAERS Safety Report 19990803 (Version 1)
Quarter: 2021Q4

REPORT INFORMATION
  Report Type: Spontaneous
  Country: US (occurrence: US)
  Receive Date: 20211023
  Receipt Date: 20211023
  Transmission Date: 20220304
  Serious: Yes (Hospitalization)
  Sender: FDA-Public Use
  Company Number: None

PATIENT
  Age: 46 Year
  Sex: Male
  Weight: 106 kg

DRUGS (4)
  1. CISPLATIN [Suspect]
     Active Substance: CISPLATIN
     Dates: end: 20190524
  2. FILGRASTIM [Suspect]
     Active Substance: FILGRASTIM
     Dates: end: 20190529
  3. IFOSFAMIDE [Suspect]
     Active Substance: IFOSFAMIDE
     Dates: end: 20190524
  4. TAXOL [Suspect]
     Active Substance: PACLITAXEL
     Dates: end: 20190520

REACTIONS (4)
  - Pyrexia [None]
  - Tachycardia [None]
  - Campylobacter infection [None]
  - Enterococcus test positive [None]

NARRATIVE: CASE EVENT DATE: 20190529
